FAERS Safety Report 6456461-X (Version None)
Quarter: 2009Q4

REPORT INFORMATION
  Report Type: 
  Country: None (occurrence: None)
  Receive Date: 20091125
  Receipt Date: 20091117
  Transmission Date: 20100525
  Serious: Yes (Hospitalization, Other)
  Sender: FDA-Public Use
  Company Number: DE-AMGEN-US375551

PATIENT
  Age: 40 Year
  Sex: Male

DRUGS (1)
  1. ENBREL [Suspect]
     Indication: RHEUMATOID ARTHRITIS
     Route: 058
     Dates: start: 20060401

REACTIONS (10)
  - ABDOMINAL DISTENSION [None]
  - DIABETES MELLITUS [None]
  - FATIGUE [None]
  - GASTRIC HYPOMOTILITY [None]
  - HYPERTHERMIA [None]
  - LISTLESS [None]
  - NAUSEA [None]
  - PLEURISY [None]
  - PNEUMONIA [None]
  - VOMITING [None]
